FAERS Safety Report 9373096 (Version 1)
Quarter: 2013Q2

REPORT INFORMATION
  Report Type: Spontaneous
  Country: US (occurrence: US)
  Receive Date: 20130627
  Receipt Date: 20130627
  Transmission Date: 20140414
  Serious: Yes (Other)
  Sender: FDA-Public Use
  Company Number: US-BAYER-2013-076184

PATIENT
  Age: 32 Year
  Sex: Female

DRUGS (1)
  1. MIRENA [Suspect]
     Dosage: 20 MCG/24HR, CONT
     Route: 015
     Dates: start: 20130131, end: 20130523

REACTIONS (3)
  - Genital haemorrhage [Recovered/Resolved]
  - Sensation of pressure [Recovered/Resolved]
  - Urinary tract infection [Recovered/Resolved]
